FAERS Safety Report 25587624 (Version 1)
Quarter: 2025Q3

REPORT INFORMATION
  Report Type: Other
  Country: EU (occurrence: EU)
  Receive Date: 20250721
  Receipt Date: 20250721
  Transmission Date: 20251020
  Serious: Yes (Other)
  Sender: Integrated Therapeutic Solutions
  Company Number: EU-Integrated Therapeutic Solutions Inc.-2180910

PATIENT
  Age: 45 Year
  Sex: Female

DRUGS (1)
  1. PYLERA [Suspect]
     Active Substance: BISMUTH SUBCITRATE POTASSIUM\METRONIDAZOLE\TETRACYCLINE HYDROCHLORIDE
     Indication: Helicobacter infection
     Dates: start: 20210811

REACTIONS (3)
  - Hypersensitivity [Recovering/Resolving]
  - Influenza like illness [Recovering/Resolving]
  - Drug hypersensitivity [Recovered/Resolved]
